FAERS Safety Report 4631917-0 (Version None)
Quarter: 2005Q2

REPORT INFORMATION
  Report Type: 
  Country: None (occurrence: None)
  Receive Date: 20050411
  Receipt Date: 20040507
  Transmission Date: 20051028
  Serious: Yes (Death, Hospitalization, Other)
  Sender: FDA-Public Use
  Company Number: SA-ABBOTT-04P-259-0260108-00

PATIENT
  Age: 53 Year
  Sex: Female

DRUGS (7)
  1. DEPAKENE [Suspect]
     Indication: EPILEPSY
     Route: 048
     Dates: start: 20031204, end: 20031221
  2. DEXAMETHASONE [Concomitant]
     Indication: DRUG USE FOR UNKNOWN INDICATION
     Dates: start: 20031217, end: 20031221
  3. FUROSEMIDE [Concomitant]
     Indication: DRUG USE FOR UNKNOWN INDICATION
     Dates: start: 20031217, end: 20031221
  4. HYDERGIN [Concomitant]
     Indication: DRUG USE FOR UNKNOWN INDICATION
     Dates: start: 20031217, end: 20031221
  5. PIRACETAM [Concomitant]
     Indication: DRUG USE FOR UNKNOWN INDICATION
     Dates: start: 20031217, end: 20031221
  6. DOPAMINE [Concomitant]
     Indication: DRUG USE FOR UNKNOWN INDICATION
     Dates: start: 20031201
  7. DOBUTAMINE HCL [Concomitant]
     Indication: DRUG USE FOR UNKNOWN INDICATION
     Dates: start: 20031201

REACTIONS (18)
  - ACTIVATED PARTIAL THROMBOPLASTIN TIME PROLONGED [None]
  - AMMONIA INCREASED [None]
  - BLOOD ALBUMIN DECREASED [None]
  - BLOOD PRESSURE DECREASED [None]
  - BRAIN NEOPLASM [None]
  - CEREBRAL VENTRICLE DILATATION [None]
  - CEREBRAL VENTRICULOGRAM ABNORMAL [None]
  - GENERAL PHYSICAL HEALTH DETERIORATION [None]
  - HEPATITIS FULMINANT [None]
  - HEPATORENAL FAILURE [None]
  - HYPONATRAEMIA [None]
  - INTERNATIONAL NORMALISED RATIO INCREASED [None]
  - JAUNDICE [None]
  - METASTASES TO LIVER [None]
  - NEOPLASM PROGRESSION [None]
  - SHIFT TO THE RIGHT [None]
  - SUBDURAL HAEMORRHAGE [None]
  - VOMITING [None]
